FAERS Safety Report 9539825 (Version 1)
Quarter: 2013Q3

REPORT INFORMATION
  Report Type: Spontaneous
  Country: US (occurrence: US)
  Receive Date: 20130920
  Receipt Date: 20130920
  Transmission Date: 20140515
  Serious: No
  Sender: FDA-Public Use
  Company Number: US-PURDUE-USA-2011-0065529

PATIENT
  Sex: Female

DRUGS (4)
  1. HYDROMORPHONE HCL (SIMILAR TO 19-892) [Suspect]
     Indication: EXOSTOSIS
     Dosage: UNK
     Dates: start: 201011
  2. HYDROMORPHONE HCL (SIMILAR TO 19-892) [Suspect]
     Indication: INTERVERTEBRAL DISC DEGENERATION
  3. MORPHINE SULFATE [Suspect]
     Indication: EXOSTOSIS
     Dosage: UNK
     Dates: start: 201011
  4. MORPHINE SULFATE [Suspect]
     Indication: INTERVERTEBRAL DISC DEGENERATION

REACTIONS (5)
  - Weight increased [Unknown]
  - Flatulence [Unknown]
  - Diarrhoea [Unknown]
  - Vomiting [Unknown]
  - Pruritus [Unknown]
